FAERS Safety Report 4522777-7 (Version None)
Quarter: 2004Q4

REPORT INFORMATION
  Report Type: 
  Country: None (occurrence: None)
  Receive Date: 20041207
  Receipt Date: 20041119
  Transmission Date: 20050328
  Serious: No
  Sender: FDA-Public Use
  Company Number: F01200403678

PATIENT
  Age: 72 Year
  Sex: Male

DRUGS (3)
  1. OXALIPLATIN [Suspect]
     Indication: COLORECTAL CANCER METASTATIC
     Dosage: 130 MG/M2 Q3W INTRAVENOUS NOS
     Route: 042
     Dates: start: 20040826, end: 20040826
  2. CAPECITABINE [Suspect]
     Dosage: 1000 MG/M2 TWICE DAILY FOR 2 WEEKS, Q3W ORAL
     Route: 048
     Dates: start: 20040826
  3. BEVACIZUMAB OR PLACEBO - SOLUTION [Suspect]
     Dosage: 1 UNIT Q3W INTRAVENOUS NOS
     Route: 042
     Dates: start: 20040826, end: 20040826

REACTIONS (1)
  - AMAUROSIS [None]
